FAERS Safety Report 9785209 (Version 2)
Quarter: 2014Q1

REPORT INFORMATION
  Report Type: Spontaneous
  Country: JP (occurrence: JP)
  Receive Date: 20131227
  Receipt Date: 20140106
  Transmission Date: 20141002
  Serious: Yes (Other)
  Sender: FDA-Public Use
  Company Number: JP-RANBAXY-2013RR-76510

PATIENT
  Age: 77 Year
  Sex: Female

DRUGS (8)
  1. DONEPEZIL [Suspect]
     Indication: DEMENTIA ALZHEIMER^S TYPE
     Dosage: 3 MG, UNK
     Route: 048
  2. DONEPEZIL [Suspect]
     Dosage: 5 MG, UNK
     Route: 048
  3. DONEPEZIL [Suspect]
     Indication: DEMENTIA ALZHEIMER^S TYPE
     Dosage: 10 MG, UNK
     Route: 048
  4. DONEPEZIL [Suspect]
     Indication: DEMENTIA ALZHEIMER^S TYPE
     Dosage: 5 MG, UNK
     Route: 048
  5. MEMANTINE [Suspect]
     Indication: DEMENTIA ALZHEIMER^S TYPE
     Dosage: 5 MG, UNK
     Route: 065
  6. TELMISARTAN [Concomitant]
     Indication: HYPERTENSION
     Dosage: 40 MG, UNK
     Route: 048
  7. NIFEDIPINE [Concomitant]
     Indication: HYPERTENSION
     Dosage: 40 MG, UNK
     Route: 048
  8. PRAVASTATIN SODIUM [Concomitant]
     Indication: DYSLIPIDAEMIA
     Dosage: 5 MG, UNK
     Route: 048

REACTIONS (2)
  - Electrocardiogram PR prolongation [Recovering/Resolving]
  - Bradycardia [Unknown]
